FAERS Safety Report 15141676 (Version 1)
Quarter: 2018Q3

REPORT INFORMATION
  Report Type: Spontaneous
  Country: US (occurrence: US)
  Receive Date: 20180713
  Receipt Date: 20180713
  Transmission Date: 20181010
  Serious: Yes (Other)
  Sender: FDA-Public Use
  Company Number: US-PFIZER INC-2018282051

PATIENT
  Sex: Male

DRUGS (1)
  1. XANAX [Suspect]
     Active Substance: ALPRAZOLAM
     Dosage: 2 MG, UNK

REACTIONS (4)
  - Head injury [Unknown]
  - Depression [Unknown]
  - Drug effect incomplete [Unknown]
  - Myocardial infarction [Unknown]
